FAERS Safety Report 4421060-8 (Version None)
Quarter: 2004Q3

REPORT INFORMATION
  Report Type: 
  Country: None (occurrence: None)
  Receive Date: 20040803
  Receipt Date: 20040719
  Transmission Date: 20050211
  Serious: Yes (Death, Life-Threatening, Hospitalization)
  Sender: FDA-Public Use
  Company Number: AT-JNJFOC-20040705028

PATIENT
  Age: 71 Year
  Sex: Male
  Weight: 77 kg

DRUGS (8)
  1. REMICADE [Suspect]
     Indication: LUMBAR VERTEBRA INJURY
     Dosage: 385 MG, INTRAVENOUS
     Route: 042
     Dates: start: 20001206, end: 20001206
  2. CIPROFLOXACINE (CIPROFLOXACIN) [Concomitant]
  3. PIPERACILLIN [Concomitant]
  4. FLUCONAZOLE [Concomitant]
  5. CIPROFLOXACIN [Concomitant]
  6. VANCOMYCIN [Concomitant]
  7. AMPHOTERICINE (AMPHOTERICIN B) [Concomitant]
  8. CEFTAZIDIME SODIUM [Concomitant]

REACTIONS (4)
  - ASPIRATION [None]
  - MULTI-ORGAN FAILURE [None]
  - RESPIRATORY FAILURE [None]
  - SEPSIS [None]
